FAERS Safety Report 7513572-5 (Version None)
Quarter: 2011Q2

REPORT INFORMATION
  Report Type: 
  Country: None (occurrence: None)
  Receive Date: 20110531
  Receipt Date: 20110517
  Transmission Date: 20111010
  Serious: Yes (Death)
  Sender: FDA-Public Use
  Company Number: DE-CELGENEUS-062-21880-11051051

PATIENT
  Age: 70 Year
  Sex: Male

DRUGS (9)
  1. CIPROFLOXACIN [Concomitant]
     Dosage: 500
     Route: 065
  2. FLUCONAZOLE [Concomitant]
     Indication: ANTIFUNGAL PROPHYLAXIS
     Dosage: 200 MILLIGRAM
     Route: 065
  3. FLUCONAZOLE [Concomitant]
     Indication: NEUTROPENIA
  4. PANTOPRAZOLE [Concomitant]
     Indication: GASTRITIS
     Dosage: 80 MILLIGRAM
     Route: 065
  5. REVLIMID [Suspect]
     Indication: MANTLE CELL LYMPHOMA REFRACTORY
     Dosage: 5 MILLIGRAM
     Route: 048
     Dates: start: 20110412, end: 20110425
  6. METOPROLOL TARTRATE [Concomitant]
     Indication: HYPERTENSION
     Dosage: 95
     Route: 065
  7. ACYCLOVIR [Concomitant]
     Indication: PROPHYLAXIS
     Dosage: 800
     Route: 065
  8. CIPROFLOXACIN [Concomitant]
     Indication: NEUTROPENIA
  9. ACYCLOVIR [Concomitant]
     Indication: NEUTROPENIA

REACTIONS (1)
  - MANTLE CELL LYMPHOMA REFRACTORY [None]
